FAERS Safety Report 5211669-6 (Version None)
Quarter: 2007Q1

REPORT INFORMATION
  Report Type: 
  Country: None (occurrence: None)
  Receive Date: 20070117
  Receipt Date: 20070117
  Transmission Date: 20070707
  Serious: Yes (Other)
  Sender: FDA-Public Use
  Company Number: None

PATIENT
  Age: 41 Year
  Sex: Female
  Weight: 107 kg

DRUGS (7)
  1. VARENICLINE [Suspect]
     Indication: SMOKING CESSATION THERAPY
     Dosage: BID PO
     Route: 048
  2. CLONAZEPAM [Concomitant]
  3. SEROQUEL [Concomitant]
  4. WELLBUTRIN SR [Concomitant]
  5. TRILEPTAL [Concomitant]
  6. PROTONIX [Concomitant]
  7. SINGULAIR [Concomitant]

REACTIONS (7)
  - AGITATION [None]
  - ANGER [None]
  - COMPLETED SUICIDE [None]
  - FORMICATION [None]
  - INSOMNIA [None]
  - IRRITABILITY [None]
  - MANIA [None]
